FAERS Safety Report 8946915 (Version 2)
Quarter: 2013Q1

REPORT INFORMATION
  Report Type: Spontaneous
  Country: IT (occurrence: IT)
  Receive Date: 20121205
  Receipt Date: 20130314
  Transmission Date: 20140127
  Serious: Yes (Hospitalization)
  Sender: FDA-Public Use
  Company Number: IT-GLAXOSMITHKLINE-B0849877A

PATIENT
  Age: 83 Year
  Sex: Female

DRUGS (2)
  1. RYTMONORM [Suspect]
     Indication: PRODUCT USED FOR UNKNOWN INDICATION
     Dosage: 2TAB PER DAY
     Route: 048
     Dates: start: 20111119, end: 20121119
  2. COTAREG [Concomitant]
     Indication: HYPERTENSION

REACTIONS (6)
  - Aphasia [Recovering/Resolving]
  - Hyperhidrosis [Recovering/Resolving]
  - Vomiting [Recovering/Resolving]
  - Bradycardia [Recovering/Resolving]
  - Overdose [Unknown]
  - Hyponatraemia [Recovering/Resolving]
